FAERS Safety Report 4332431-2 (Version None)
Quarter: 2004Q1

REPORT INFORMATION
  Report Type: 
  Country: None (occurrence: None)
  Receive Date: 20040329
  Receipt Date: 20031218
  Transmission Date: 20041129
  Serious: No
  Sender: FDA-Public Use
  Company Number: 03P-163-0241443-00

PATIENT
  Age: 66 Year
  Sex: Female
  Weight: 90.7194 kg

DRUGS (6)
  1. HUMIRA [Suspect]
     Indication: POLYMYALGIA
     Dosage: 40 MG, 1 IN 2 WK, SUBCUTANEOUS
     Route: 058
     Dates: start: 20031105
  2. DEXTROPROPOXYPHENE [Concomitant]
  3. LEVOTHYROXINE SODIUM [Concomitant]
  4. SPIRONOLACTONE [Concomitant]
  5. CARISOPRODOL [Concomitant]
  6. CELECOXIB [Concomitant]

REACTIONS (3)
  - INJECTION SITE ERYTHEMA [None]
  - RASH ERYTHEMATOUS [None]
  - RASH PRURITIC [None]
